FAERS Safety Report 4457010-8 (Version None)
Quarter: 2004Q3

REPORT INFORMATION
  Report Type: 
  Country: None (occurrence: None)
  Receive Date: 20040923
  Receipt Date: 20040720
  Transmission Date: 20050211
  Serious: Yes (Death, Hospitalization)
  Sender: FDA-Public Use
  Company Number: FR-GLAXOSMITHKLINE-B0340035A

PATIENT
  Age: 70 Year
  Sex: Male
  Weight: 113 kg

DRUGS (8)
  1. AVANDIA [Suspect]
     Indication: DIABETES MELLITUS NON-INSULIN-DEPENDENT
     Dosage: 8MG PER DAY
     Route: 048
     Dates: start: 20030528, end: 20040709
  2. FUROSEMIDE [Concomitant]
     Dosage: 40MG UNKNOWN
     Route: 048
  3. AMAREL [Concomitant]
     Route: 048
  4. LESCOL [Concomitant]
     Route: 048
  5. AMLOR [Concomitant]
     Route: 048
  6. TRIATEC [Concomitant]
     Route: 048
  7. DIFFU K [Concomitant]
     Route: 048
  8. VIOXX [Concomitant]
     Route: 048

REACTIONS (8)
  - ACUTE PULMONARY OEDEMA [None]
  - ACUTE RESPIRATORY FAILURE [None]
  - CHEST PAIN [None]
  - IMMUNOSUPPRESSION [None]
  - LEFT VENTRICULAR FAILURE [None]
  - MULTI-ORGAN FAILURE [None]
  - NEOPLASM [None]
  - PNEUMOCYSTIS CARINII PNEUMONIA [None]
